FAERS Safety Report 17945788 (Version 1)
Quarter: 2020Q2

REPORT INFORMATION
  Report Type: Spontaneous
  Country: FR (occurrence: FR)
  Receive Date: 20200625
  Receipt Date: 20200625
  Transmission Date: 20200714
  Serious: Yes (Hospitalization)
  Sender: FDA-Public Use
  Company Number: FR-SEATTLE GENETICS-2020SGN02779

PATIENT
  Age: 71 Year
  Sex: Female
  Weight: 53 kg

DRUGS (5)
  1. ADCETRIS [Suspect]
     Active Substance: BRENTUXIMAB VEDOTIN
     Indication: HODGKIN^S DISEASE
     Dosage: 100 MILLIGRAM
     Route: 041
     Dates: start: 20200304, end: 20200326
  2. BACTRIM [Concomitant]
     Active Substance: SULFAMETHOXAZOLE\TRIMETHOPRIM
     Indication: INFECTION PROPHYLAXIS
     Dosage: 3 DOSAGE FORM, 1/WEEK
     Route: 048
     Dates: start: 20190524
  3. ACIDE FOLIQUE [Concomitant]
     Active Substance: FOLIC ACID
     Indication: VITAMIN SUPPLEMENTATION
     Dosage: 10 MILLIGRAM, QD
     Route: 048
     Dates: start: 20190524
  4. VALACICLOVIR HYDROCHLORIDE [Concomitant]
     Active Substance: VALACYCLOVIR HYDROCHLORIDE
     Indication: INFECTION PROPHYLAXIS
     Dosage: 500 MILLIGRAM, QD
     Route: 048
     Dates: start: 20190524
  5. NEXIUM [Concomitant]
     Active Substance: ESOMEPRAZOLE MAGNESIUM
     Indication: PRODUCT USED FOR UNKNOWN INDICATION
     Dosage: 20 MILLIGRAM, QD
     Route: 048
     Dates: start: 201903, end: 201904

REACTIONS (2)
  - Hepatitis cholestatic [Recovering/Resolving]
  - Jaundice [Recovered/Resolved]

NARRATIVE: CASE EVENT DATE: 20200324
